FAERS Safety Report 9814955 (Version 2)
Quarter: 2015Q4

REPORT INFORMATION
  Report Type: Report from Study
  Country: US (occurrence: US)
  Receive Date: 20140113
  Receipt Date: 20151019
  Transmission Date: 20160305
  Serious: Yes (Death)
  Sender: FDA-Public Use
  Company Number: US-ROCHE-1333067

PATIENT
  Age: 36 Year
  Sex: Female
  Weight: 70 kg

DRUGS (12)
  1. MYCOPHENOLATE MOFETIL. [Suspect]
     Active Substance: MYCOPHENOLATE MOFETIL
     Indication: PRODUCT USED FOR UNKNOWN INDICATION
     Route: 065
  2. PREDNISONE. [Concomitant]
     Active Substance: PREDNISONE
     Dosage: HIGH DOSE??ALLERGY
     Route: 065
  3. SOLU-MEDROL [Concomitant]
     Active Substance: METHYLPREDNISOLONE SODIUM SUCCINATE
     Route: 042
  4. METHADONE [Concomitant]
     Active Substance: METHADONE HYDROCHLORIDE
     Route: 065
  5. IMURAN [Suspect]
     Active Substance: AZATHIOPRINE
     Indication: PRODUCT USED FOR UNKNOWN INDICATION
     Route: 065
  6. TYLENOL [Concomitant]
     Active Substance: ACETAMINOPHEN
     Route: 048
  7. RITUXAN [Suspect]
     Active Substance: RITUXIMAB
     Route: 042
  8. OXYCODONE [Concomitant]
     Active Substance: OXYCODONE
     Indication: PAIN
     Dosage: 5-10 MG
     Route: 065
  9. CIPROFLOXACIN. [Concomitant]
     Active Substance: CIPROFLOXACIN
     Route: 065
  10. RITUXAN [Suspect]
     Active Substance: RITUXIMAB
     Indication: SJOGREN^S SYNDROME
     Dosage: THERAPY DATES:29/DEC/2006, 09/JAN/2007,26/JUL/2007, 07/AUG/2007,24/JUN/2008,10/JUL/2008,10/FEB/2009,
     Route: 042
     Dates: start: 20061219
  11. CYTOXAN [Suspect]
     Active Substance: CYCLOPHOSPHAMIDE
     Indication: PRODUCT USED FOR UNKNOWN INDICATION
     Route: 065
  12. PHENERGAN [Concomitant]
     Active Substance: PROMETHAZINE HYDROCHLORIDE
     Route: 048

REACTIONS (16)
  - Headache [Unknown]
  - Abdominal pain [Unknown]
  - Weight bearing difficulty [Unknown]
  - Impaired gastric emptying [Unknown]
  - Nausea [Unknown]
  - Renal impairment [Unknown]
  - Tenderness [Unknown]
  - Oropharyngeal pain [Unknown]
  - Pain in extremity [Unknown]
  - Metatarsalgia [Unknown]
  - Pain [Unknown]
  - Off label use [Unknown]
  - Soft tissue disorder [Unknown]
  - Drug ineffective [Unknown]
  - Death [Fatal]
  - Drug intolerance [Unknown]

NARRATIVE: CASE EVENT DATE: 20130906
